FAERS Safety Report 6005769-0 (Version None)
Quarter: 2008Q4

REPORT INFORMATION
  Report Type: 
  Country: None (occurrence: None)
  Receive Date: 20081217
  Receipt Date: 20081211
  Transmission Date: 20090506
  Serious: Yes (Other)
  Sender: FDA-Public Use
  Company Number: BR-ABBOTT-08P-020-0492269-00

PATIENT
  Sex: Female

DRUGS (4)
  1. HUMIRA [Suspect]
     Indication: RHEUMATOID ARTHRITIS
     Route: 058
     Dates: start: 20070801, end: 20081101
  2. PREDNISONE TAB [Concomitant]
     Indication: DRUG USE FOR UNKNOWN INDICATION
  3. CHLOROQUINE PHOSPHATE [Concomitant]
     Indication: DRUG USE FOR UNKNOWN INDICATION
  4. FAMOTIDINE [Concomitant]
     Indication: DRUG USE FOR UNKNOWN INDICATION

REACTIONS (1)
  - EYE OPERATION [None]
